FAERS Safety Report 10868659 (Version 6)
Quarter: 2016Q2

REPORT INFORMATION
  Report Type: Report from Study
  Country: US (occurrence: US)
  Receive Date: 20150225
  Receipt Date: 20160420
  Transmission Date: 20160815
  Serious: Yes (Hospitalization, Other)
  Sender: FDA-Public Use
  Company Number: US-SA-2014SA109533

PATIENT
  Age: 58 Year
  Sex: Male

DRUGS (11)
  1. LANTUS [Suspect]
     Active Substance: INSULIN GLARGINE
     Indication: TYPE 2 DIABETES MELLITUS
     Dosage: DOSE:85 UNIT(S)
     Route: 065
  2. APIDRA [Suspect]
     Active Substance: INSULIN GLULISINE
     Indication: TYPE 2 DIABETES MELLITUS
     Dosage: DOSE:5 UNIT(S)
     Route: 058
  3. LANTUS [Suspect]
     Active Substance: INSULIN GLARGINE
     Indication: TYPE 2 DIABETES MELLITUS
     Dosage: DOSE:42 UNIT(S)
     Route: 065
     Dates: end: 201403
  4. APIDRA [Suspect]
     Active Substance: INSULIN GLULISINE
     Indication: TYPE 2 DIABETES MELLITUS
     Dosage: BEFORE MEALS
     Route: 065
     Dates: start: 201502
  5. LANTUS [Suspect]
     Active Substance: INSULIN GLARGINE
     Indication: TYPE 2 DIABETES MELLITUS
     Dosage: DOSE:72 UNIT(S)
     Route: 065
     Dates: start: 2005
  6. LANTUS [Suspect]
     Active Substance: INSULIN GLARGINE
     Indication: TYPE 2 DIABETES MELLITUS
     Dosage: DOSE:70 UNIT(S)
     Route: 058
  7. METFORMIN [Suspect]
     Active Substance: METFORMIN HYDROCHLORIDE
     Route: 065
  8. LANTUS [Suspect]
     Active Substance: INSULIN GLARGINE
     Indication: TYPE 2 DIABETES MELLITUS
     Dosage: DOSE:140 UNIT(S)
     Route: 058
  9. LANTUS [Suspect]
     Active Substance: INSULIN GLARGINE
     Indication: TYPE 2 DIABETES MELLITUS
     Dosage: DOSE:72 UNIT(S)
     Route: 065
  10. LANTUS [Suspect]
     Active Substance: INSULIN GLARGINE
     Indication: TYPE 2 DIABETES MELLITUS
     Dosage: DOSE:70 UNIT(S)
     Route: 065
     Dates: start: 2012
  11. APIDRA [Suspect]
     Active Substance: INSULIN GLULISINE
     Indication: TYPE 2 DIABETES MELLITUS
     Dosage: DOSE:5 UNIT(S)
     Route: 058

REACTIONS (34)
  - Pain [Unknown]
  - Chest discomfort [Unknown]
  - Dysphonia [Unknown]
  - Hyperglycaemia [Recovered/Resolved]
  - Drug dose omission [Unknown]
  - Renal impairment [Unknown]
  - Extrasystoles [Unknown]
  - Asthenia [Unknown]
  - Balance disorder [Unknown]
  - Joint injury [Unknown]
  - Tremor [Unknown]
  - Blindness [Not Recovered/Not Resolved]
  - Product use issue [Unknown]
  - Glaucoma [Unknown]
  - Weight increased [Unknown]
  - Panic attack [Unknown]
  - Crying [Unknown]
  - Cardiac disorder [Unknown]
  - Pulmonary congestion [Unknown]
  - Syncope [Unknown]
  - Limb injury [Unknown]
  - Nasopharyngitis [Unknown]
  - Neuropathy peripheral [Unknown]
  - Malaise [Unknown]
  - Retinal detachment [Unknown]
  - Head injury [Unknown]
  - Sinusitis [Unknown]
  - Arthritis [Unknown]
  - Cataract [Unknown]
  - Cerebrovascular accident [Unknown]
  - Hypothermia [Unknown]
  - Weight decreased [Not Recovered/Not Resolved]
  - Localised infection [Not Recovered/Not Resolved]
  - Visual impairment [Unknown]

NARRATIVE: CASE EVENT DATE: 201403
